FAERS Safety Report 7488791-7 (Version None)
Quarter: 2011Q2

REPORT INFORMATION
  Report Type: 
  Country: None (occurrence: None)
  Receive Date: 20110518
  Receipt Date: 20110509
  Transmission Date: 20111010
  Serious: Yes (Hospitalization)
  Sender: FDA-Public Use
  Company Number: US-ASTRAZENECA-2011SE14217

PATIENT
  Age: 70 Year
  Sex: Female

DRUGS (14)
  1. DIAZEPAM [Concomitant]
  2. PLAVIX [Concomitant]
  3. SEROQUEL [Suspect]
     Indication: HALLUCINATION
     Route: 048
  4. REGLAN [Suspect]
     Route: 065
  5. LASIX [Concomitant]
  6. GLIMEPIRIDE [Concomitant]
  7. CYMBALTA [Concomitant]
     Indication: DEPRESSION
  8. NEXIUM [Suspect]
     Indication: GASTROOESOPHAGEAL REFLUX DISEASE
     Route: 048
     Dates: start: 20010101
  9. SEROQUEL [Suspect]
     Indication: DELUSIONAL DISORDER, UNSPECIFIED TYPE
     Route: 048
  10. LEVOTHYROXINE SODIUM [Concomitant]
     Indication: THYROID DISORDER
  11. ZYFLO [Concomitant]
  12. ADVAIR DISKUS 100/50 [Concomitant]
  13. LYRICA [Concomitant]
     Indication: FIBROMYALGIA
     Route: 048
  14. ZOCOR [Concomitant]

REACTIONS (10)
  - TARDIVE DYSKINESIA [None]
  - VERTIGO [None]
  - DRUG DOSE OMISSION [None]
  - FALL [None]
  - ATAXIA [None]
  - GASTROOESOPHAGEAL REFLUX DISEASE [None]
  - CEREBROSPINAL FLUID DRAINAGE [None]
  - ANXIETY [None]
  - NYSTAGMUS [None]
  - VOMITING [None]
